FAERS Safety Report 10154284 (Version 1)
Quarter: 2014Q2

REPORT INFORMATION
  Report Type: Spontaneous
  Country: US (occurrence: US)
  Receive Date: 20140506
  Receipt Date: 20140506
  Transmission Date: 20141212
  Serious: Yes (Hospitalization)
  Sender: FDA-Public Use
  Company Number: US-ELI_LILLY_AND_COMPANY-US201404008871

PATIENT
  Sex: Female

DRUGS (2)
  1. CYMBALTA [Suspect]
     Indication: PRODUCT USED FOR UNKNOWN INDICATION
     Route: 065
  2. ZYPREXA ZYDIS [Suspect]
     Indication: DEMENTIA
     Route: 065

REACTIONS (3)
  - Dementia [Unknown]
  - Hypersensitivity [Unknown]
  - Off label use [Recovered/Resolved]
